FAERS Safety Report 6196748-1 (Version None)
Quarter: 2009Q2

REPORT INFORMATION
  Report Type: 
  Country: None (occurrence: None)
  Receive Date: 20090520
  Receipt Date: 20090512
  Transmission Date: 20091009
  Serious: Yes (Disabling)
  Sender: FDA-Public Use
  Company Number: US-MERCK-0807USA05261

PATIENT
  Age: 59 Year
  Sex: Female
  Weight: 60 kg

DRUGS (2)
  1. FOSAMAX [Suspect]
     Indication: OSTEOPOROSIS
     Route: 048
     Dates: start: 20010101, end: 20080101
  2. FOSAMAX [Suspect]
     Indication: OSTEOPENIA
     Route: 048
     Dates: start: 20010101, end: 20080101

REACTIONS (9)
  - DRUG HYPERSENSITIVITY [None]
  - FIBROMYALGIA [None]
  - JAUNDICE [None]
  - JAW DISORDER [None]
  - ORAL TORUS [None]
  - RENAL DISORDER [None]
  - RESORPTION BONE INCREASED [None]
  - SYSTEMIC LUPUS ERYTHEMATOSUS [None]
  - TOOTH DISORDER [None]
